FAERS Safety Report 23831391 (Version 1)
Quarter: 2024Q2

REPORT INFORMATION
  Report Type: Spontaneous
  Country: CA (occurrence: CA)
  Receive Date: 20240508
  Receipt Date: 20240508
  Transmission Date: 20240716
  Serious: Yes (Life-Threatening, Hospitalization, Other)
  Sender: FDA-Public Use
  Company Number: CA-Covis Pharma Europe B.V.-2024COV00565

PATIENT
  Age: 65 Year
  Sex: Male

DRUGS (100)
  1. OMNARIS [Suspect]
     Active Substance: CICLESONIDE
     Route: 045
  2. CICLESONIDE [Suspect]
     Active Substance: CICLESONIDE
     Route: 065
  3. ADVAIR HFA [Suspect]
     Active Substance: FLUTICASONE PROPIONATE\SALMETEROL XINAFOATE
  4. ALENDRONATE SODIUM [Suspect]
     Active Substance: ALENDRONATE SODIUM
  5. AMOXICILLIN\CLAVULANATE POTASSIUM [Suspect]
     Active Substance: AMOXICILLIN\CLAVULANATE POTASSIUM
  6. ANORO ELLIPTA [Suspect]
     Active Substance: UMECLIDINIUM BROMIDE\VILANTEROL TRIFENATATE
  7. AZATHIOPRINE [Suspect]
     Active Substance: AZATHIOPRINE
  8. AZATHIOPRINE [Suspect]
     Active Substance: AZATHIOPRINE
     Route: 048
  9. AZATHIOPRINE [Suspect]
     Active Substance: AZATHIOPRINE
     Route: 042
  10. AZITHROMYCIN [Suspect]
     Active Substance: AZITHROMYCIN
  11. BETA GLUCAN [Suspect]
     Active Substance: BETA GLUCAN
  12. BETAMETHASONE [Suspect]
     Active Substance: BETAMETHASONE\BETAMETHASONE DIPROPIONATE
  13. BETAMETHASONE DIPROPIONATE [Suspect]
     Active Substance: BETAMETHASONE DIPROPIONATE
  14. BREO ELLIPTA [Suspect]
     Active Substance: FLUTICASONE FUROATE\VILANTEROL TRIFENATATE
  15. BUDESONIDE [Suspect]
     Active Substance: BUDESONIDE
  16. BUDESONIDE\FORMOTEROL FUMARATE [Suspect]
     Active Substance: BUDESONIDE\FORMOTEROL FUMARATE
  17. CALCIUM CARBONATE [Suspect]
     Active Substance: CALCIUM CARBONATE
  18. CALCIUM CARBONATE [Suspect]
     Active Substance: CALCIUM CARBONATE
  19. CALCIUM CARBONATE [Suspect]
     Active Substance: CALCIUM CARBONATE
  20. CALCIUM CARBONATE [Suspect]
     Active Substance: CALCIUM CARBONATE
  21. VITAMIN B COMPLEX [Suspect]
     Active Substance: CYANOCOBALAMIN\DEXPANTHENOL\NIACINAMIDE\PYRIDOXINE HYDROCHLORIDE\RIBOFLAVIN 5^-PHOSPHATE SODIUM\THIA
  22. CANDESARTAN [Suspect]
     Active Substance: CANDESARTAN
  23. CANDESARTAN [Suspect]
     Active Substance: CANDESARTAN
     Route: 048
  24. CANDESARTAN CILEXETIL\HYDROCHLOROTHIAZIDE [Suspect]
     Active Substance: CANDESARTAN CILEXETIL\HYDROCHLOROTHIAZIDE
  25. CEFUROXIME [Suspect]
     Active Substance: CEFUROXIME
  26. CEPHALEXIN [Suspect]
     Active Substance: CEPHALEXIN
  27. CHOLECALCIFEROL [Suspect]
     Active Substance: CHOLECALCIFEROL
  28. CLOTRIMAZOLE [Suspect]
     Active Substance: CLOTRIMAZOLE
  29. .ALPHA.-TOCOPHEROL ACETATE, D- [Suspect]
     Active Substance: .ALPHA.-TOCOPHEROL ACETATE, D-
  30. DILTIAZEM [Suspect]
     Active Substance: DILTIAZEM
  31. DOMPERIDONE MALEATE [Suspect]
     Active Substance: DOMPERIDONE MALEATE
  32. DOXAZOSIN [Suspect]
     Active Substance: DOXAZOSIN MESYLATE
  33. DUTASTERIDE [Suspect]
     Active Substance: DUTASTERIDE
  34. ELIQUIS [Suspect]
     Active Substance: APIXABAN
  35. ERGOCALCIFEROL [Suspect]
     Active Substance: ERGOCALCIFEROL
  36. ESCITALOPRAM [Suspect]
     Active Substance: ESCITALOPRAM OXALATE
  37. FERROUS SULFATE [Suspect]
     Active Substance: FERROUS SULFATE
  38. FLOMAX [Suspect]
     Active Substance: TAMSULOSIN HYDROCHLORIDE
  39. FLOMAX [Suspect]
     Active Substance: TAMSULOSIN HYDROCHLORIDE
  40. FORMOTEROL [Suspect]
     Active Substance: FORMOTEROL
  41. FORMOTEROL FUMARATE\MOMETASONE FUROATE [Suspect]
     Active Substance: FORMOTEROL FUMARATE\MOMETASONE FUROATE
  42. FUROSEMIDE [Suspect]
     Active Substance: FUROSEMIDE
  43. GLUCAGON [Suspect]
     Active Substance: GLUCAGON\GLUCAGON HYDROCHLORIDE\WATER
  44. GLUCAGON [Suspect]
     Active Substance: GLUCAGON\GLUCAGON HYDROCHLORIDE\WATER
  45. HYDROCHLOROTHIAZIDE [Suspect]
     Active Substance: HYDROCHLOROTHIAZIDE
  46. IMURAN [Suspect]
     Active Substance: AZATHIOPRINE
  47. INSULIN GLARGINE [Suspect]
     Active Substance: INSULIN GLARGINE
     Route: 058
  48. INSULIN GLARGINE [Suspect]
     Active Substance: INSULIN GLARGINE
     Route: 058
  49. LASIX [Suspect]
     Active Substance: FUROSEMIDE
  50. LEVOFLOXACIN [Suspect]
     Active Substance: LEVOFLOXACIN
  51. LEVOFLOXACIN [Suspect]
     Active Substance: LEVOFLOXACIN
  52. LEVOTHYROXINE SODIUM [Suspect]
     Active Substance: LEVOTHYROXINE SODIUM
  53. LIRAGLUTIDE [Suspect]
     Active Substance: LIRAGLUTIDE
  54. MAGNESIUM OXIDE [Suspect]
     Active Substance: MAGNESIUM OXIDE
  55. METFORMIN [Suspect]
     Active Substance: METFORMIN HYDROCHLORIDE
  56. METFORMIN [Suspect]
     Active Substance: METFORMIN HYDROCHLORIDE
  57. MONTELUKAST SODIUM [Suspect]
     Active Substance: MONTELUKAST SODIUM
  58. MOXIFLOXACIN [Suspect]
     Active Substance: MOXIFLOXACIN
  59. PANTOPRAZOLE SODIUM [Suspect]
     Active Substance: PANTOPRAZOLE SODIUM
  60. PANTOPRAZOLE SODIUM [Suspect]
     Active Substance: PANTOPRAZOLE SODIUM
  61. PANTOPRAZOLE SODIUM [Suspect]
     Active Substance: PANTOPRAZOLE SODIUM
  62. NICOTINAMIDE [Suspect]
     Active Substance: NIACINAMIDE
  63. NOVORAPID [Suspect]
     Active Substance: INSULIN ASPART
     Route: 058
  64. UNSPECIFIED INGREDIENT [Suspect]
     Active Substance: UNSPECIFIED INGREDIENT
  65. NUCALA [Suspect]
     Active Substance: MEPOLIZUMAB
  66. PANTOPRAZOLE [Suspect]
     Active Substance: PANTOPRAZOLE
  67. LEVOFLOXACIN [Suspect]
     Active Substance: LEVOFLOXACIN
  68. RUPATADINE [Suspect]
     Active Substance: RUPATADINE
  69. SENNA [Suspect]
     Active Substance: SENNA LEAF\SENNOSIDES\SENNOSIDES A AND B
     Route: 048
  70. SENNA [Suspect]
     Active Substance: SENNA LEAF\SENNOSIDES\SENNOSIDES A AND B
  71. SENNOSIDES [Suspect]
     Active Substance: SENNOSIDES
  72. SERTRALINE [Suspect]
     Active Substance: SERTRALINE HYDROCHLORIDE
  73. SPIRIVA [Suspect]
     Active Substance: TIOTROPIUM BROMIDE MONOHYDRATE
  74. SPIRIVA [Suspect]
     Active Substance: TIOTROPIUM BROMIDE MONOHYDRATE
  75. SULFAMETHOXAZOLE AND TRIMETHOPRIM [Suspect]
     Active Substance: SULFAMETHOXAZOLE\TRIMETHOPRIM
  76. SULFAMETHOXAZOLE AND TRIMETHOPRIM [Suspect]
     Active Substance: SULFAMETHOXAZOLE\TRIMETHOPRIM
  77. SULFATRIM [Suspect]
     Active Substance: SULFAMETHOXAZOLE\TRIMETHOPRIM
  78. TAMSULOSIN [Suspect]
     Active Substance: TAMSULOSIN
  79. TAMSULOSIN [Suspect]
     Active Substance: TAMSULOSIN
  80. TAMSULOSIN [Suspect]
     Active Substance: TAMSULOSIN
  81. TAMSULOSIN [Suspect]
     Active Substance: TAMSULOSIN
  82. TAMSULOSIN [Suspect]
     Active Substance: TAMSULOSIN
  83. PANTOPRAZOLE MAGNESIUM [Suspect]
     Active Substance: PANTOPRAZOLE MAGNESIUM
  84. PANTOPRAZOLE MAGNESIUM [Suspect]
     Active Substance: PANTOPRAZOLE MAGNESIUM
  85. PANTOPRAZOLE MAGNESIUM [Suspect]
     Active Substance: PANTOPRAZOLE MAGNESIUM
  86. TIAZAC [Suspect]
     Active Substance: DILTIAZEM HYDROCHLORIDE
  87. TIOTROPIUM BROMIDE [Suspect]
     Active Substance: TIOTROPIUM BROMIDE
  88. TRELEGY ELLIPTA [Suspect]
     Active Substance: FLUTICASONE FUROATE\UMECLIDINIUM BROMIDE\VILANTEROL TRIFENATATE
  89. TRELEGY ELLIPTA [Suspect]
     Active Substance: FLUTICASONE FUROATE\UMECLIDINIUM BROMIDE\VILANTEROL TRIFENATATE
  90. UMECLIDINIUM BROMIDE [Suspect]
     Active Substance: UMECLIDINIUM BROMIDE
  91. UMECLIDINIUM BROMIDE [Suspect]
     Active Substance: UMECLIDINIUM BROMIDE
  92. UMECLIDINIUM BROMIDE [Suspect]
     Active Substance: UMECLIDINIUM BROMIDE
  93. VITAMIN D [Suspect]
     Active Substance: VITAMIN D NOS
  94. CUPRIC SULFATE ANHYDROUS [Suspect]
     Active Substance: CUPRIC SULFATE ANHYDROUS
  95. SULFADIAZINE\TRIMETHOPRIM [Suspect]
     Active Substance: SULFADIAZINE\TRIMETHOPRIM
  96. SULFADIAZINE\TRIMETHOPRIM [Suspect]
     Active Substance: SULFADIAZINE\TRIMETHOPRIM
  97. SULFADIAZINE\TRIMETHOPRIM [Suspect]
     Active Substance: SULFADIAZINE\TRIMETHOPRIM
  98. LEVOTHYROXINE [Concomitant]
     Active Substance: LEVOTHYROXINE\LEVOTHYROXINE SODIUM
  99. ROSUVASTATIN [Concomitant]
     Active Substance: ROSUVASTATIN
     Route: 058
  100. SULFATRIM [Concomitant]
     Active Substance: SULFAMETHOXAZOLE\TRIMETHOPRIM

REACTIONS (35)
  - Anxiety [Unknown]
  - Arteriosclerosis [Unknown]
  - Arteriosclerosis coronary artery [Unknown]
  - Asthma [Unknown]
  - Condition aggravated [Unknown]
  - Conjunctivitis allergic [Unknown]
  - Dust allergy [Unknown]
  - Dyspnoea [Unknown]
  - Eosinophilic granulomatosis with polyangiitis [Unknown]
  - Full blood count abnormal [Unknown]
  - Haemoptysis [Unknown]
  - Hypothyroidism [Unknown]
  - Hypoxia [Unknown]
  - Loss of personal independence in daily activities [Unknown]
  - Lung disorder [Unknown]
  - Mite allergy [Unknown]
  - Mycotic allergy [Unknown]
  - Neuritis [Unknown]
  - Neurological symptom [Unknown]
  - Nodule [Unknown]
  - Normochromic normocytic anaemia [Unknown]
  - Obstructive airways disorder [Unknown]
  - Pain in extremity [Unknown]
  - Productive cough [Unknown]
  - Pulmonary alveolar haemorrhage [Unknown]
  - Pulmonary embolism [Unknown]
  - Pulmonary fibrosis [Unknown]
  - Pulmonary vasculitis [Unknown]
  - Respiratory symptom [Unknown]
  - Sleep disorder due to a general medical condition [Unknown]
  - Spirometry abnormal [Unknown]
  - Therapeutic product effect incomplete [Unknown]
  - Thrombosis [Unknown]
  - Vasculitis [Unknown]
  - Wheezing [Unknown]
